FAERS Safety Report 7526414-9 (Version None)
Quarter: 2011Q2

REPORT INFORMATION
  Report Type: 
  Country: None (occurrence: None)
  Receive Date: 20110606
  Receipt Date: 20110602
  Transmission Date: 20111010
  Serious: No
  Sender: FDA-Public Use
  Company Number: US-PFIZER INC-2011120947

PATIENT
  Sex: Female
  Weight: 65.8 kg

DRUGS (1)
  1. LYRICA [Suspect]
     Indication: PERIPHERAL NERVE INJURY
     Dosage: 50 MG, 1X/DAY
     Route: 048
     Dates: start: 20110501

REACTIONS (1)
  - HEADACHE [None]
